FAERS Safety Report 7260371-8 (Version None)
Quarter: 2011Q1

REPORT INFORMATION
  Report Type: 
  Country: None (occurrence: None)
  Receive Date: 20110130
  Receipt Date: 20101007
  Transmission Date: 20110831
  Serious: No
  Sender: FDA-Public Use
  Company Number: US-ABBOTT-10P-163-0676923-00

PATIENT
  Sex: Female
  Weight: 69.462 kg

DRUGS (3)
  1. ASACOL [Concomitant]
     Indication: CROHN'S DISEASE
     Dosage: SEVEN PILLS A DAY
     Route: 048
  2. APRI [Concomitant]
     Indication: CONTRACEPTION
  3. HUMIRA [Suspect]
     Indication: CROHN'S DISEASE
     Route: 058
     Dates: start: 20091201

REACTIONS (1)
  - INJECTION SITE NODULE [None]
